FAERS Safety Report 13278083 (Version 2)
Quarter: 2017Q1

REPORT INFORMATION
  Report Type: Spontaneous
  Country: US (occurrence: US)
  Receive Date: 20170228
  Receipt Date: 20170309
  Transmission Date: 20170428
  Serious: No
  Sender: FDA-Public Use
  Company Number: US-PFIZER INC-2017083811

PATIENT
  Age: 58 Year
  Sex: Female
  Weight: 88 kg

DRUGS (2)
  1. SKELAXIN [Suspect]
     Active Substance: METAXALONE
     Indication: MUSCLE SPASMS
  2. SKELAXIN [Suspect]
     Active Substance: METAXALONE
     Indication: PAIN
     Dosage: 800 MG, AS NEEDED(3 TIMES EVERY DAY AS NEEDED)
     Route: 048
     Dates: end: 20161116

REACTIONS (2)
  - Pain [Unknown]
  - Muscle spasms [Unknown]
